FAERS Safety Report 19980682 (Version 1)
Quarter: 2021Q4

REPORT INFORMATION
  Report Type: Spontaneous
  Country: US (occurrence: US)
  Receive Date: 20211021
  Receipt Date: 20211021
  Transmission Date: 20220303
  Serious: Yes (Life-Threatening, Hospitalization, Other)
  Sender: FDA-Public Use
  Company Number: US-SLATE RUN PHARMACEUTICALS-21US000722

PATIENT

DRUGS (5)
  1. AZITHROMYCIN [Suspect]
     Active Substance: AZITHROMYCIN
     Indication: Bronchitis
     Dosage: UNK
     Route: 042
  2. AZITHROMYCIN [Suspect]
     Active Substance: AZITHROMYCIN
     Indication: Pneumonia
     Dosage: UNK
  3. PREDNISONE [Concomitant]
     Active Substance: PREDNISONE
     Indication: Bronchitis
     Dosage: UNK
  4. CEFTRIAXONE [Concomitant]
     Active Substance: CEFTRIAXONE
     Indication: Pneumonia
     Route: 042
  5. HEPARIN [Concomitant]
     Active Substance: HEPARIN SODIUM
     Indication: Thrombosis prophylaxis
     Dosage: 5000 INTERNATIONAL UNIT, Q 8 HR
     Route: 058

REACTIONS (12)
  - Acute respiratory failure [Recovered/Resolved]
  - Lung infiltration [Recovered/Resolved]
  - Pneumonia influenzal [Recovered/Resolved]
  - Splenic rupture [Recovered/Resolved]
  - Haemoperitoneum [Recovered/Resolved]
  - Splenomegaly [Recovered/Resolved]
  - Shock haemorrhagic [Recovered/Resolved]
  - Haemangioma of spleen [Recovered/Resolved]
  - Acute kidney injury [Recovered/Resolved]
  - Transaminases increased [Recovered/Resolved]
  - Treatment failure [Recovered/Resolved]
  - Hypotension [Recovered/Resolved]
